FAERS Safety Report 9903781 (Version 1)
Quarter: 2014Q1

REPORT INFORMATION
  Report Type: Report from Study
  Country: US (occurrence: US)
  Receive Date: 20140218
  Receipt Date: 20140218
  Transmission Date: 20141002
  Serious: Yes (Other)
  Sender: FDA-Public Use
  Company Number: US-PFIZER INC-2014040684

PATIENT
  Age: 42 Year
  Sex: Female

DRUGS (3)
  1. IBUPROFEN [Suspect]
     Dosage: UNK
     Route: 065
  2. HYDROCHLOROTHIAZIDE [Suspect]
     Dosage: UNK
     Route: 065
  3. LISINOPRIL [Suspect]
     Dosage: UNK
     Route: 065

REACTIONS (2)
  - Renal tubular necrosis [Unknown]
  - Renal amyloidosis [Unknown]
